FAERS Safety Report 11803915 (Version 3)
Quarter: 2016Q1

REPORT INFORMATION
  Report Type: Spontaneous
  Country: JP (occurrence: JP)
  Receive Date: 20151204
  Receipt Date: 20160224
  Transmission Date: 20160525
  Serious: Yes (Death)
  Sender: FDA-Public Use
  Company Number: JP-JNJFOC-20151203036

PATIENT
  Age: 80 Year
  Sex: Male
  Weight: 73 kg

DRUGS (11)
  1. LOXONIN [Suspect]
     Active Substance: LOXOPROFEN SODIUM
     Indication: METASTASES TO BONE
     Route: 048
  2. IRTRA [Concomitant]
     Active Substance: IRBESARTAN\TRICHLORMETHIAZIDE
     Route: 048
     Dates: start: 20141022
  3. FEBURIC [Concomitant]
     Active Substance: FEBUXOSTAT
     Route: 048
  4. LOXONIN [Suspect]
     Active Substance: LOXOPROFEN SODIUM
     Indication: PROSTATE CANCER
     Route: 048
  5. SELARA [Concomitant]
     Active Substance: EPLERENONE
     Route: 048
     Dates: start: 20120419
  6. LANIRAPID [Concomitant]
     Active Substance: METILDIGOXIN
     Route: 048
  7. LOXONIN [Suspect]
     Active Substance: LOXOPROFEN SODIUM
     Indication: METASTASES TO BONE
     Dosage: DOSE: 180 MG TO 360 MG
     Route: 048
     Dates: end: 20150425
  8. CANAGLU [Suspect]
     Active Substance: CANAGLIFLOZIN
     Indication: TYPE 2 DIABETES MELLITUS
     Route: 048
     Dates: start: 20140926, end: 20150425
  9. XARELTO [Suspect]
     Active Substance: RIVAROXABAN
     Indication: PRODUCT USED FOR UNKNOWN INDICATION
     Dosage: ONSET DATE WAS BEFORE THE ADMINISTRATION OF CANAGLIFLOZIN
     Route: 048
  10. LOXONIN [Suspect]
     Active Substance: LOXOPROFEN SODIUM
     Indication: PROSTATE CANCER
     Dosage: DOSE: 180 MG TO 360 MG
     Route: 048
     Dates: end: 20150425
  11. LUPRAC [Concomitant]
     Active Substance: TORSEMIDE
     Route: 048
     Dates: start: 20140312

REACTIONS (2)
  - Haematemesis [Fatal]
  - Melaena [Fatal]

NARRATIVE: CASE EVENT DATE: 20150424
